FAERS Safety Report 9376076 (Version 3)
Quarter: 2013Q3

REPORT INFORMATION
  Report Type: Spontaneous
  Country: US (occurrence: US)
  Receive Date: 20130630
  Receipt Date: 20130801
  Transmission Date: 20140515
  Serious: No
  Sender: FDA-Public Use
  Company Number: US-009507513-1306USA014043

PATIENT
  Sex: Female

DRUGS (3)
  1. PEGINTRON [Suspect]
     Indication: HEPATITIS C
     Dosage: UNK, REDIPEN
     Dates: start: 20130626, end: 20130704
  2. REBETOL [Suspect]
     Indication: HEPATITIS C
     Dosage: UNK
     Route: 048
     Dates: start: 20130624, end: 20130704
  3. TELAPREVIR [Suspect]
     Indication: HEPATITIS C
     Dosage: UNK
     Dates: start: 20130624, end: 20130704

REACTIONS (16)
  - Skin burning sensation [Unknown]
  - Feeling hot [Unknown]
  - Ageusia [Unknown]
  - Dysgeusia [Unknown]
  - Blister [Unknown]
  - Irritability [Unknown]
  - Insomnia [Unknown]
  - Pruritus generalised [Unknown]
  - Swelling face [Unknown]
  - Decreased appetite [Unknown]
  - Rash pruritic [Unknown]
  - Depression [Unknown]
  - Somnolence [Unknown]
  - Drug ineffective [Unknown]
  - Pruritus [Not Recovered/Not Resolved]
  - Scar [Unknown]
